FAERS Safety Report 23044162 (Version 1)
Quarter: 2023Q4

REPORT INFORMATION
  Report Type: Spontaneous
  Country: US (occurrence: US)
  Receive Date: 20231009
  Receipt Date: 20231009
  Transmission Date: 20240109
  Serious: No
  Sender: FDA-Public Use
  Company Number: US-BRISTOL-MYERS SQUIBB COMPANY-RCT-2023-0455508

PATIENT
  Age: 65 Year
  Sex: Male

DRUGS (1)
  1. REVLIMID [Suspect]
     Active Substance: LENALIDOMIDE
     Indication: Plasma cell myeloma
     Dosage: DOSE : 10 MG;     FREQ : NUMBER 21. TAKE ONE EVERY DAY FOR 21 DAYS, OFF FOR 7 DAYS
     Route: 048
     Dates: start: 20230518

REACTIONS (1)
  - Diarrhoea [Unknown]
